FAERS Safety Report 7042547-8 (Version None)
Quarter: 2010Q4

REPORT INFORMATION
  Report Type: 
  Country: None (occurrence: None)
  Receive Date: 20101013
  Receipt Date: 20091117
  Transmission Date: 20110411
  Serious: No
  Sender: FDA-Public Use
  Company Number: US-ASTRAZENECA-2009SE20335

PATIENT
  Sex: Male

DRUGS (8)
  1. SYMBICORT [Suspect]
     Dosage: 160/4.5 UG 1 PUFF BID
     Route: 055
  2. SYMBICORT [Suspect]
     Dosage: 1 PUFF
     Route: 055
  3. SYMBICORT [Suspect]
     Dosage: 1 PUFF
     Route: 055
  4. ALBUTEROL [Concomitant]
  5. PULMICORT [Concomitant]
  6. AZMACORT [Concomitant]
  7. MEDILNHALER [Concomitant]
  8. PREDNISONE [Concomitant]

REACTIONS (3)
  - INTENTIONAL DRUG MISUSE [None]
  - OSTEOPENIA [None]
  - PRODUCT QUALITY ISSUE [None]
